FAERS Safety Report 8881763 (Version 1)
Quarter: 2012Q4

REPORT INFORMATION
  Report Type: 
  Country: CA (occurrence: CA)
  Receive Date: 20121101
  Receipt Date: 20121101
  Transmission Date: 20130627
  Serious: Yes (Hospitalization)
  Sender: FDA-Public Use
  Company Number: CA-ELI_LILLY_AND_COMPANY-CA201210006634

PATIENT
  Age: 70 Year
  Sex: Female

DRUGS (26)
  1. FORTEO [Suspect]
     Indication: OSTEOPOROSIS
     Dosage: 20 ug, qd
     Route: 058
     Dates: start: 20110702, end: 20120913
  2. FORTEO [Suspect]
     Dosage: 20 ug, qd
     Route: 058
     Dates: start: 20120919
  3. DIOVAN [Concomitant]
     Dosage: UNK, unknown
     Route: 065
  4. DOMPERIDONE [Concomitant]
     Dosage: UNK, unknown
     Route: 065
  5. FOLIC ACID [Concomitant]
     Dosage: UNK, unknown
     Route: 065
  6. LASIX [Concomitant]
     Dosage: UNK, unknown
     Route: 065
  7. PLAQUENIL [Concomitant]
     Dosage: UNK, unknown
     Route: 065
  8. PREDNISONE [Concomitant]
     Dosage: UNK, unknown
     Route: 065
  9. CODEINE CONTIN [Concomitant]
     Dosage: UNK, unknown
     Route: 065
  10. SINGULAIR [Concomitant]
     Dosage: UNK, unknown
     Route: 065
  11. ADVAIR DISKUS [Concomitant]
     Dosage: UNK, unknown
     Route: 065
  12. FLONASE [Concomitant]
     Dosage: UNK, unknown
     Route: 065
  13. SALVENT [Concomitant]
     Dosage: UNK, unknown
     Route: 065
  14. HUMALOG [Concomitant]
     Dosage: UNK, unknown
     Route: 065
  15. LANTUS [Concomitant]
     Dosage: UNK, unknown
     Route: 065
  16. BABY ASPIRIN [Concomitant]
     Dosage: UNK, unknown
     Route: 065
  17. SENOKOT [Concomitant]
     Dosage: UNK, unknown
     Route: 065
  18. SOFLAX [Concomitant]
     Dosage: UNK, unknown
     Route: 065
  19. LACTULOSE [Concomitant]
     Dosage: UNK, unknown
     Route: 065
  20. NYSTATIN [Concomitant]
     Indication: RASH
     Dosage: UNK, unknown
     Route: 065
  21. VITAMIN D [Concomitant]
     Dosage: UNK, unknown
     Route: 065
  22. CALCIUM CARBONATE [Concomitant]
     Dosage: UNK, unknown
     Route: 065
  23. VITAMIN B COMPLEX [Concomitant]
     Dosage: UNK, unknown
     Route: 065
  24. FISH OIL [Concomitant]
     Dosage: UNK, unknown
     Route: 065
  25. PROBIOTICS [Concomitant]
     Dosage: UNK, unknown
     Route: 065
  26. NEXIUM [Concomitant]
     Dosage: UNK, unknown
     Route: 065

REACTIONS (5)
  - Cardiac failure congestive [Not Recovered/Not Resolved]
  - Fatigue [Not Recovered/Not Resolved]
  - Somnolence [Not Recovered/Not Resolved]
  - Dyspnoea [Not Recovered/Not Resolved]
  - Haemoglobin decreased [Not Recovered/Not Resolved]
